FAERS Safety Report 9005930 (Version 1)
Quarter: 2013Q1

REPORT INFORMATION
  Report Type: Spontaneous
  Country: US (occurrence: US)
  Receive Date: 20130109
  Receipt Date: 20130109
  Transmission Date: 20140127
  Serious: Yes (Other)
  Sender: FDA-Public Use
  Company Number: US-MERCK-1301USA001941

PATIENT
  Age: 3 Year
  Sex: Male

DRUGS (4)
  1. MONTELUKAST SODIUM [Suspect]
  2. FLUTICASONE PROPIONATE [Suspect]
  3. THEOPHYLLINE [Concomitant]
     Route: 055
  4. VENTOLIN (ALBUTEROL SULFATE) [Concomitant]
     Dosage: 0.5 MG, BID
     Route: 055

REACTIONS (3)
  - Contusion [Unknown]
  - Periorbital haematoma [Unknown]
  - Haemorrhage [Unknown]
